FAERS Safety Report 19608292 (Version 1)
Quarter: 2021Q3

REPORT INFORMATION
  Report Type: Report from Study
  Country: BR (occurrence: BR)
  Receive Date: 20210726
  Receipt Date: 20210726
  Transmission Date: 20211014
  Serious: Yes (Other)
  Sender: FDA-Public Use
  Company Number: NVSC2021BR160324

PATIENT
  Age: 45 Year
  Sex: Male

DRUGS (4)
  1. COSENTYX [Suspect]
     Active Substance: SECUKINUMAB
     Dosage: 300 MG, QMO
     Route: 065
     Dates: start: 20210319
  2. COSENTYX [Suspect]
     Active Substance: SECUKINUMAB
     Dosage: 300 MG, QMO
     Route: 065
     Dates: start: 20210419
  3. COSENTYX [Suspect]
     Active Substance: SECUKINUMAB
     Indication: PSORIASIS
     Dosage: 300 MG (ATTACK DOSES)
     Route: 065
     Dates: start: 20210122, end: 20210219
  4. COSENTYX [Suspect]
     Active Substance: SECUKINUMAB
     Dosage: 300 MG, QMO
     Route: 065
     Dates: start: 20210706

REACTIONS (5)
  - Product dose omission issue [Unknown]
  - Pain [Recovering/Resolving]
  - Psoriasis [Recovering/Resolving]
  - Haemorrhage [Unknown]
  - Inflammation [Recovering/Resolving]

NARRATIVE: CASE EVENT DATE: 202105
